FAERS Safety Report 7498523-4 (Version None)
Quarter: 2011Q2

REPORT INFORMATION
  Report Type: 
  Country: None (occurrence: None)
  Receive Date: 20110516
  Receipt Date: 20110503
  Transmission Date: 20111010
  Serious: Yes (Other)
  Sender: FDA-Public Use
  Company Number: 2011MA004892

PATIENT
  Age: 19 Year
  Sex: Male

DRUGS (4)
  1. DICLOFENAC SODIUM [Suspect]
     Indication: KERATOCONUS
     Dosage: Q5H; OPH
     Route: 047
  2. DOXYCYCLINE [Concomitant]
  3. CARBOXYMETHYLCELLULOSE [Concomitant]
  4. MOXIFLOXACIN [Concomitant]

REACTIONS (8)
  - FLAT ANTERIOR CHAMBER OF EYE [None]
  - SEIDEL TEST POSITIVE [None]
  - ULCERATIVE KERATITIS [None]
  - EYE COMPLICATION ASSOCIATED WITH DEVICE [None]
  - CORNEAL OEDEMA [None]
  - CORNEAL THINNING [None]
  - CORNEAL PERFORATION [None]
  - CORNEAL TRANSPLANT [None]
